FAERS Safety Report 5785092-X (Version None)
Quarter: 2008Q2

REPORT INFORMATION
  Report Type: 
  Country: None (occurrence: None)
  Receive Date: 20080620
  Receipt Date: 20080620
  Transmission Date: 20081010
  Serious: Yes (Other)
  Sender: FDA-Public Use
  Company Number: None

PATIENT
  Age: 34 Year
  Sex: Female
  Weight: 89.3586 kg

DRUGS (1)
  1. LEVAQUIN [Suspect]
     Indication: URINARY TRACT INFECTION
     Dosage: 250 MG  3  PO
     Route: 048
     Dates: start: 20080511, end: 20080513

REACTIONS (22)
  - ABDOMINAL DISTENSION [None]
  - ANXIETY [None]
  - ARTHRALGIA [None]
  - BLOOD GLUCOSE ABNORMAL [None]
  - BLOOD GLUCOSE DECREASED [None]
  - BURNING SENSATION [None]
  - CONSTIPATION [None]
  - DIARRHOEA [None]
  - HEART RATE INCREASED [None]
  - HYPERTONIA [None]
  - INSOMNIA [None]
  - JOINT SWELLING [None]
  - MUSCLE TIGHTNESS [None]
  - MUSCULAR WEAKNESS [None]
  - MYALGIA [None]
  - OESOPHAGEAL SPASM [None]
  - PANIC ATTACK [None]
  - PARAESTHESIA [None]
  - TENDON PAIN [None]
  - TINNITUS [None]
  - TREMOR [None]
  - VISION BLURRED [None]
